FAERS Safety Report 8943525 (Version 1)
Quarter: 2012Q4

REPORT INFORMATION
  Report Type: 
  Country: US (occurrence: US)
  Receive Date: 20121204
  Receipt Date: 20121204
  Transmission Date: 20130627
  Serious: No
  Sender: FDA-Public Use
  Company Number: US-ABBOTT-12P-163-0991384-00

PATIENT
  Sex: Female
  Weight: 55.84 kg

DRUGS (4)
  1. CEFDINIR [Suspect]
     Indication: SCAB
     Dosage: 1 dose
  2. AVISTA [Concomitant]
     Indication: PRODUCT USED FOR UNKNOWN INDICATION
  3. CELEBREX [Concomitant]
     Indication: PRODUCT USED FOR UNKNOWN INDICATION
  4. BENICAR [Concomitant]
     Indication: PRODUCT USED FOR UNKNOWN INDICATION

REACTIONS (2)
  - Retching [Recovered/Resolved]
  - Headache [Recovered/Resolved]
